FAERS Safety Report 9671026 (Version 3)
Quarter: 2014Q1

REPORT INFORMATION
  Report Type: Spontaneous
  Country: US (occurrence: US)
  Receive Date: 20131106
  Receipt Date: 20140118
  Transmission Date: 20141002
  Serious: Yes (Hospitalization, Other)
  Sender: FDA-Public Use
  Company Number: US-ABBVIE-13P-163-1124739-00

PATIENT
  Age: 50 Year
  Sex: Male
  Weight: 128.03 kg

DRUGS (5)
  1. ANDROGEL [Suspect]
     Indication: BLOOD TESTOSTERONE DECREASED
     Dosage: 1 PUMP
     Dates: start: 20130410
  2. METFORMIN [Concomitant]
     Indication: DIABETES MELLITUS
  3. INDOMETHACIN [Concomitant]
     Indication: PRODUCT USED FOR UNKNOWN INDICATION
     Route: 048
  4. OMEPRAZOLE [Concomitant]
     Indication: PRODUCT USED FOR UNKNOWN INDICATION
     Route: 048
  5. ZOFRAN [Concomitant]
     Indication: PRODUCT USED FOR UNKNOWN INDICATION
     Dosage: QD PRN
     Route: 048

REACTIONS (6)
  - Cholelithiasis [Recovered/Resolved]
  - Cholelithiasis [Recovered/Resolved]
  - Vomiting [Unknown]
  - Breath alcohol test positive [Unknown]
  - Nausea [Unknown]
  - Hepatic steatosis [Recovered/Resolved]
